FAERS Safety Report 8230494-5 (Version None)
Quarter: 2012Q1

REPORT INFORMATION
  Report Type: 
  Country: None (occurrence: None)
  Receive Date: 20120323
  Receipt Date: 20120312
  Transmission Date: 20120608
  Serious: Yes (Other)
  Sender: FDA-Public Use
  Company Number: US-PERRIGO-11US010253

PATIENT
  Sex: Female

DRUGS (3)
  1. DIPHENHYDRAMINE HCL [Suspect]
     Indication: SNEEZING
  2. PROTONIX [Concomitant]
     Indication: GASTROOESOPHAGEAL REFLUX DISEASE
     Dosage: UNK
     Route: 065
  3. DIPHENHYDRAMINE HCL [Suspect]
     Indication: EYE PRURITUS
     Dosage: 25MG-50MG  TWICE
     Route: 048
     Dates: start: 20111118, end: 20111119

REACTIONS (6)
  - DRUG INEFFECTIVE [None]
  - RASH MACULAR [None]
  - PRESYNCOPE [None]
  - CONDITION AGGRAVATED [None]
  - PRURITUS [None]
  - THROAT TIGHTNESS [None]
